FAERS Safety Report 12379986 (Version 4)
Quarter: 2016Q3

REPORT INFORMATION
  Report Type: Spontaneous
  Country: CA (occurrence: CA)
  Receive Date: 20160518
  Receipt Date: 20160707
  Transmission Date: 20161109
  Serious: Yes (Other)
  Sender: FDA-Public Use
  Company Number: CA-009507513-1601CAN003296

PATIENT
  Age: 49 Year
  Sex: Male
  Weight: 88 kg

DRUGS (4)
  1. CORTISONE [Concomitant]
     Active Substance: CORTISONE\HYDROCORTISONE
     Dosage: UNK, TID
  2. ZOPICLONE [Concomitant]
     Active Substance: ZOPICLONE
     Dosage: 7.5 MG, BEFORE BED
  3. KEYTRUDA [Suspect]
     Active Substance: PEMBROLIZUMAB
     Indication: MALIGNANT MELANOMA
     Dosage: STRENGTH REPORTED AS 2MG/KG, 180 MG, Q3W
     Route: 042
     Dates: start: 20151204
  4. KEYTRUDA [Suspect]
     Active Substance: PEMBROLIZUMAB
     Dosage: 180 MG, Q3W
     Route: 042
     Dates: start: 20151204

REACTIONS (9)
  - Somnolence [Unknown]
  - Adverse event [Unknown]
  - Keratitis [Recovering/Resolving]
  - Somnolence [Unknown]
  - Emotional disorder [Unknown]
  - Somnolence [Unknown]
  - Weight decreased [Unknown]
  - Fatigue [Unknown]
  - Fatigue [Unknown]

NARRATIVE: CASE EVENT DATE: 20151204
